FAERS Safety Report 24707986 (Version 1)
Quarter: 2024Q4

REPORT INFORMATION
  Report Type: Spontaneous
  Country: BG (occurrence: BG)
  Receive Date: 20241206
  Receipt Date: 20241206
  Transmission Date: 20250114
  Serious: Yes (Other)
  Sender: VISTAPHARM
  Company Number: BG-VISTAPHARM-2024-BG-000013

PATIENT
  Age: 61 Year
  Sex: Male

DRUGS (3)
  1. DAPAGLIFLOZIN PROPANEDIOL\METFORMIN HYDROCHLORIDE [Suspect]
     Active Substance: DAPAGLIFLOZIN PROPANEDIOL\METFORMIN HYDROCHLORIDE
     Indication: Diabetes mellitus
     Dosage: 5 MG/1000 MG TWICE DAILY
     Dates: start: 2017, end: 2021
  2. GLIMEPIRIDE [Concomitant]
     Active Substance: GLIMEPIRIDE
     Indication: Diabetes mellitus
     Dosage: 4 MG TWICE DAILY
     Dates: start: 2021, end: 2022
  3. METFORMIN HYDROCHLORIDE [Suspect]
     Active Substance: METFORMIN HYDROCHLORIDE
     Indication: Diabetes mellitus
     Dosage: 500 MG 3 TIMES A DAY
     Dates: start: 2015, end: 2017

REACTIONS (2)
  - Basal cell carcinoma [Unknown]
  - Product contamination chemical [Unknown]
